FAERS Safety Report 11684977 (Version 1)
Quarter: 2015Q4

REPORT INFORMATION
  Report Type: Report from Study
  Country: US (occurrence: US)
  Receive Date: 20151030
  Receipt Date: 20151030
  Transmission Date: 20160304
  Serious: Yes (Hospitalization, Disabling)
  Sender: FDA-Public Use
  Company Number: PHEH2015US021925

PATIENT
  Age: 19 Year
  Sex: Male

DRUGS (2)
  1. HECORIA [Suspect]
     Active Substance: TACROLIMUS
     Indication: PRODUCT USED FOR UNKNOWN INDICATION
     Dosage: 6 DF, BID
     Route: 048
     Dates: start: 20150610
  2. MYFORTIC [Suspect]
     Active Substance: MYCOPHENOLATE SODIUM
     Indication: PRODUCT USED FOR UNKNOWN INDICATION
     Dosage: 180 MG, FOUR TIMES A DAY
     Route: 048
     Dates: start: 20150611

REACTIONS (1)
  - Kidney transplant rejection [Unknown]

NARRATIVE: CASE EVENT DATE: 20151023
